FAERS Safety Report 20709867 (Version 2)
Quarter: 2022Q2

REPORT INFORMATION
  Report Type: Spontaneous
  Country: US (occurrence: US)
  Receive Date: 20220414
  Receipt Date: 20220422
  Transmission Date: 20220720
  Serious: Yes (Hospitalization, Other)
  Sender: FDA-Public Use
  Company Number: US-PFIZER INC-202200550624

PATIENT
  Age: 15 Year
  Sex: Male
  Weight: 59 kg

DRUGS (2)
  1. XALKORI [Suspect]
     Active Substance: CRIZOTINIB
     Indication: Anaplastic large-cell lymphoma
     Dosage: 400 MG, 2X/DAY
  2. XALKORI [Suspect]
     Active Substance: CRIZOTINIB
     Indication: Anaplastic lymphoma kinase gene mutation

REACTIONS (10)
  - Abdominal pain [Unknown]
  - Nausea [Unknown]
  - Vomiting [Unknown]
  - Diarrhoea [Unknown]
  - Visual impairment [Unknown]
  - Illness [Unknown]
  - Abdominal pain upper [Unknown]
  - Pain [Unknown]
  - Oesophageal pain [Unknown]
  - Faeces soft [Unknown]

NARRATIVE: CASE EVENT DATE: 20220310
